FAERS Safety Report 8606182-X (Version None)
Quarter: 2012Q3

REPORT INFORMATION
  Report Type: 
  Country: None (occurrence: None)
  Receive Date: 20120820
  Receipt Date: 20120806
  Transmission Date: 20120928
  Serious: Yes (Hospitalization, Other)
  Sender: FDA-Public Use
  Company Number: IT-ROCHE-1102060

PATIENT

DRUGS (8)
  1. LAPATINIB [Suspect]
     Indication: BREAST CANCER
     Dosage: ARM B
     Route: 048
  2. CYCLOPHOSPHAMIDE [Suspect]
     Indication: BREAST CANCER
  3. LAPATINIB [Suspect]
     Dosage: ARM C
     Route: 048
  4. HERCEPTIN [Suspect]
     Indication: BREAST CANCER
     Dosage: LOADING DOSE
  5. HERCEPTIN [Suspect]
     Dosage: MAINTENANCE DOSE
  6. FLUOROURACIL [Suspect]
     Indication: BREAST CANCER
  7. PACLITAXEL [Suspect]
     Indication: BREAST CANCER
  8. EPIRUBICIN [Suspect]
     Indication: BREAST CANCER

REACTIONS (10)
  - MUCOSAL INFLAMMATION [None]
  - SKIN TOXICITY [None]
  - FATIGUE [None]
  - DIARRHOEA [None]
  - NAUSEA [None]
  - HEPATOTOXICITY [None]
  - NEUTROPENIA [None]
  - VOMITING [None]
  - ABDOMINAL PAIN [None]
  - HYPERSENSITIVITY [None]
